FAERS Safety Report 15398405 (Version 7)
Quarter: 2020Q3

REPORT INFORMATION
  Report Type: Report from Study
  Country: US (occurrence: US)
  Receive Date: 20180918
  Receipt Date: 20200811
  Transmission Date: 20201102
  Serious: Yes (Death, Hospitalization)
  Sender: FDA-Public Use
  Company Number: US-ACTELION-A-US2018-177553

PATIENT
  Age: 78 Year
  Sex: Female

DRUGS (2)
  1. ADCIRCA [Concomitant]
     Active Substance: TADALAFIL
     Dosage: 20 MG, QD
     Dates: start: 20180817
  2. OPSUMIT [Suspect]
     Active Substance: MACITENTAN
     Indication: PULMONARY ARTERIAL HYPERTENSION
     Dosage: 10 MG, QD
     Route: 048
     Dates: start: 20180815, end: 20200524

REACTIONS (13)
  - Surgery [Not Recovered/Not Resolved]
  - Secretion discharge [Unknown]
  - Hospitalisation [Unknown]
  - Fatigue [Unknown]
  - Dizziness [Unknown]
  - Neoplasm [Unknown]
  - Influenza like illness [Unknown]
  - Malaise [Unknown]
  - Vertigo [Unknown]
  - Transitional cell carcinoma [Fatal]
  - Nasal congestion [Unknown]
  - Memory impairment [Unknown]
  - Hypoacusis [Unknown]

NARRATIVE: CASE EVENT DATE: 20180913
